FAERS Safety Report 9564469 (Version 2)
Quarter: 2013Q4

REPORT INFORMATION
  Report Type: Spontaneous
  Country: PL (occurrence: PL)
  Receive Date: 20130930
  Receipt Date: 20131017
  Transmission Date: 20140711
  Serious: Yes (Hospitalization)
  Sender: FDA-Public Use
  Company Number: PL-JNJFOC-20130916142

PATIENT
  Age: 67 Year
  Sex: Male

DRUGS (6)
  1. XARELTO [Suspect]
     Indication: CEREBROVASCULAR ACCIDENT PROPHYLAXIS
     Route: 048
     Dates: start: 201212
  2. XARELTO [Suspect]
     Indication: ISCHAEMIC STROKE
     Route: 048
     Dates: start: 201212
  3. XARELTO [Suspect]
     Indication: ATRIAL FIBRILLATION
     Route: 048
     Dates: start: 201212
  4. RAMIPRIL [Concomitant]
     Route: 065
  5. AMLODIPINE MALEATE [Concomitant]
     Route: 065
  6. SORTIS (ATORVASTATIN) [Concomitant]
     Route: 065

REACTIONS (1)
  - Hypoaesthesia [Unknown]
